FAERS Safety Report 9679072 (Version 1)
Quarter: 2013Q4

REPORT INFORMATION
  Report Type: Spontaneous
  Country: GB (occurrence: None)
  Receive Date: 20131107
  Receipt Date: 20131107
  Transmission Date: 20140711
  Serious: Yes (Other)
  Sender: FDA-Public Use
  Company Number: INDI-GB-2013-0053

PATIENT
  Age: 76 Year
  Sex: Female
  Weight: 65 kg

DRUGS (4)
  1. INDOMETACIN [Suspect]
     Indication: RHEUMATOID ARTHRITIS
     Route: 048
     Dates: start: 201201, end: 201309
  2. ASPIRIN (ACETYLSALICYLIC ACID) [Concomitant]
  3. ATORVASTATIN (ATORVASTATIN) [Concomitant]
  4. CO-CODAMOL (PANADEINE CO) [Concomitant]

REACTIONS (8)
  - Joint swelling [None]
  - Contusion [None]
  - Contusion [None]
  - Mouth ulceration [None]
  - Eating disorder [None]
  - Decreased appetite [None]
  - Pain [None]
  - Local swelling [None]
